FAERS Safety Report 5008022-7 (Version None)
Quarter: 2006Q2

REPORT INFORMATION
  Report Type: 
  Country: None (occurrence: None)
  Receive Date: 20060518
  Receipt Date: 20060505
  Transmission Date: 20061013
  Serious: Yes (Hospitalization)
  Sender: FDA-Public Use
  Company Number: 2006052897

PATIENT
  Age: 50 Year
  Sex: Male
  Weight: 57 kg

DRUGS (3)
  1. SUTENT [Suspect]
     Indication: HEPATIC NEOPLASM MALIGNANT
     Dosage: 50 MG (50 MG, 1 IN 1 D), ORAL
     Route: 048
     Dates: start: 20060320, end: 20060413
  2. EFFEXOR [Concomitant]
  3. MORPHINE SULFATE [Concomitant]

REACTIONS (5)
  - ASTHENIA [None]
  - DERMATITIS BULLOUS [None]
  - HEPATIC FAILURE [None]
  - SOMNOLENCE [None]
  - THROMBOCYTOPENIA [None]
